FAERS Safety Report 4663360-2 (Version None)
Quarter: 2005Q2

REPORT INFORMATION
  Report Type: 
  Country: None (occurrence: None)
  Receive Date: 20050502
  Receipt Date: 20050216
  Transmission Date: 20051028
  Serious: No
  Sender: FDA-Public Use
  Company Number: 200511277US

PATIENT
  Sex: Male

DRUGS (1)
  1. KETEK [Suspect]
     Indication: PNEUMONIA
     Dosage: 800 MG QD PO
     Route: 048
     Dates: start: 20050214

REACTIONS (2)
  - DYSGEUSIA [None]
  - SOMNOLENCE [None]
